FAERS Safety Report 4968859-7 (Version None)
Quarter: 2006Q2

REPORT INFORMATION
  Report Type: 
  Country: None (occurrence: None)
  Receive Date: 20060411
  Receipt Date: 20050921
  Transmission Date: 20061013
  Serious: Yes (Hospitalization)
  Sender: FDA-Public Use
  Company Number: US-ROCHE-418808

PATIENT
  Age: 52 Year
  Sex: Female

DRUGS (5)
  1. PEGASYS [Suspect]
     Indication: DRUG USE FOR UNKNOWN INDICATION
     Route: 058
     Dates: start: 20051230
  2. PEGASYS [Suspect]
     Route: 058
     Dates: end: 20050915
  3. PEGASYS [Suspect]
     Route: 058
     Dates: start: 20050708
  4. COPEGUS [Suspect]
     Indication: DRUG USE FOR UNKNOWN INDICATION
     Route: 048
     Dates: start: 20050708
  5. COPEGUS [Suspect]
     Route: 048
     Dates: start: 20051230

REACTIONS (2)
  - NEPHROLITHIASIS [None]
  - PLATELET COUNT DECREASED [None]
